FAERS Safety Report 9209240 (Version 2)
Quarter: 2013Q4

REPORT INFORMATION
  Report Type: Spontaneous
  Country: GB (occurrence: GB)
  Receive Date: 20130404
  Receipt Date: 20131014
  Transmission Date: 20140711
  Serious: Yes (Other)
  Sender: FDA-Public Use
  Company Number: GB-BANPHARM-20131109

PATIENT
  Age: 39 Year
  Sex: Male

DRUGS (4)
  1. IBUPROFEN UNKNOWN PRODUCT [Suspect]
     Indication: PAIN
     Dosage: 400 MG TID
     Route: 048
     Dates: start: 20050103, end: 20050107
  2. LITHIUM CARBONATE [Suspect]
     Indication: BIPOLAR DISORDER
     Route: 048
  3. OLANZAPINE [Concomitant]
     Indication: BIPOLAR DISORDER
     Dosage: 10 MG QD,
     Route: 048
  4. PAROXETINE [Concomitant]
     Dosage: 30 MG QD,

REACTIONS (2)
  - Drug interaction [Recovered/Resolved]
  - Antipsychotic drug level increased [Recovered/Resolved]
